FAERS Safety Report 4892626-6 (Version None)
Quarter: 2005Q4

REPORT INFORMATION
  Report Type: 
  Country: None (occurrence: None)
  Receive Date: 20051220
  Receipt Date: 20051102
  Transmission Date: 20060501
  Serious: Yes (Other)
  Sender: FDA-Public Use
  Company Number: 423935

PATIENT
  Age: 58 Year
  Sex: Female
  Weight: 51.3 kg

DRUGS (3)
  1. BONIVA [Suspect]
     Indication: OSTEOPOROSIS
     Dosage: 1 PER MONTH ORAL
     Route: 048
     Dates: start: 20051101, end: 20051101
  2. RESTASIS (CYCLOSPORINE) [Concomitant]
  3. HORMONES NOS (HORMONE NOS) [Concomitant]

REACTIONS (10)
  - ARTHRALGIA [None]
  - ASTHENIA [None]
  - DIZZINESS [None]
  - DYSPHAGIA [None]
  - DYSPNOEA [None]
  - HEADACHE [None]
  - INFLUENZA LIKE ILLNESS [None]
  - MOBILITY DECREASED [None]
  - NAUSEA [None]
  - PAIN IN JAW [None]
